FAERS Safety Report 16538378 (Version 2)
Quarter: 2019Q3

REPORT INFORMATION
  Report Type: Spontaneous
  Country: BR (occurrence: BR)
  Receive Date: 20190708
  Receipt Date: 20190826
  Transmission Date: 20191004
  Serious: Yes (Hospitalization)
  Sender: FDA-Public Use
  Company Number: BR-GLAXOSMITHKLINE-BR2019AMR118270

PATIENT
  Age: 3 Year
  Sex: Male

DRUGS (2)
  1. ZINNAT [Suspect]
     Active Substance: CEFUROXIME
     Indication: SECRETION DISCHARGE
  2. ZINNAT [Suspect]
     Active Substance: CEFUROXIME
     Indication: COUGH
     Dosage: 5 ML, BID

REACTIONS (5)
  - General physical health deterioration [Not Recovered/Not Resolved]
  - Vomiting [Not Recovered/Not Resolved]
  - Nausea [Not Recovered/Not Resolved]
  - Psychological trauma [Not Recovered/Not Resolved]
  - Product complaint [Unknown]
